FAERS Safety Report 4928144-6 (Version None)
Quarter: 2006Q1

REPORT INFORMATION
  Report Type: 
  Country: None (occurrence: None)
  Receive Date: 20060223
  Receipt Date: 20051110
  Transmission Date: 20060701
  Serious: Yes (Hospitalization)
  Sender: FDA-Public Use
  Company Number: GBWYE007726SEP05

PATIENT
  Age: 75 Year
  Sex: Female

DRUGS (5)
  1. EFFEXOR XR [Suspect]
     Dosage: 75 MG 1X PER 1 WK
     Dates: start: 19980901, end: 20050926
  2. OLANZAPINE [Concomitant]
  3. FOLIC ACID [Concomitant]
  4. ZIMOVANE (ZOPICLONE) [Concomitant]
  5. AMISULPRIDE [Concomitant]

REACTIONS (3)
  - RASH MACULAR [None]
  - RASH PRURITIC [None]
  - SKIN INFECTION [None]
